FAERS Safety Report 14731737 (Version 1)
Quarter: 2018Q2

REPORT INFORMATION
  Report Type: Spontaneous
  Country: US (occurrence: US)
  Receive Date: 20180407
  Receipt Date: 20180407
  Transmission Date: 20180711
  Serious: Yes (Death)
  Sender: FDA-Public Use
  Company Number: PHHY2018US054378

PATIENT
  Age: 14 Year
  Sex: Male

DRUGS (11)
  1. SULFAMETHOXAZOLE AND TRIMETHOPRIM [Suspect]
     Active Substance: SULFAMETHOXAZOLE\TRIMETHOPRIM
     Indication: IMMUNOSUPPRESSANT DRUG THERAPY
  2. URSODIOL. [Suspect]
     Active Substance: URSODIOL
     Indication: CHRONIC GRAFT VERSUS HOST DISEASE
     Dosage: UNK
     Route: 065
  3. URSODIOL. [Suspect]
     Active Substance: URSODIOL
     Indication: IMMUNOSUPPRESSANT DRUG THERAPY
  4. ASCORBIC ACID. [Concomitant]
     Active Substance: ASCORBIC ACID
     Indication: VITAMIN C DEFICIENCY
     Route: 065
  5. PREDNISONE. [Suspect]
     Active Substance: PREDNISONE
     Indication: IMMUNOSUPPRESSANT DRUG THERAPY
  6. INFLIXIMAB [Suspect]
     Active Substance: INFLIXIMAB
     Indication: IMMUNOSUPPRESSANT DRUG THERAPY
  7. PREDNISONE. [Suspect]
     Active Substance: PREDNISONE
     Indication: CHRONIC GRAFT VERSUS HOST DISEASE
     Route: 065
  8. INFLIXIMAB [Suspect]
     Active Substance: INFLIXIMAB
     Indication: CHRONIC GRAFT VERSUS HOST DISEASE
     Route: 065
  9. MYCOPHENOLATE MOFETIL. [Suspect]
     Active Substance: MYCOPHENOLATE MOFETIL
     Indication: CHRONIC GRAFT VERSUS HOST DISEASE
     Route: 065
  10. MYCOPHENOLATE MOFETIL. [Suspect]
     Active Substance: MYCOPHENOLATE MOFETIL
     Indication: IMMUNOSUPPRESSANT DRUG THERAPY
  11. SULFAMETHOXAZOLE AND TRIMETHOPRIM [Suspect]
     Active Substance: SULFAMETHOXAZOLE\TRIMETHOPRIM
     Indication: CHRONIC GRAFT VERSUS HOST DISEASE
     Route: 065

REACTIONS (13)
  - Skin reaction [Fatal]
  - Rash [Fatal]
  - Pain of skin [Fatal]
  - Chronic graft versus host disease [Fatal]
  - Diffuse alopecia [Fatal]
  - Skin plaque [Fatal]
  - Pruritus [Fatal]
  - Condition aggravated [Fatal]
  - Hyperkeratosis [Fatal]
  - Infection [Fatal]
  - Chronic graft versus host disease in skin [Fatal]
  - Graft versus host disease in gastrointestinal tract [Fatal]
  - Graft versus host disease in liver [Fatal]
